FAERS Safety Report 14243903 (Version 4)
Quarter: 2019Q2

REPORT INFORMATION
  Report Type: Spontaneous
  Country: NO (occurrence: NO)
  Receive Date: 20171201
  Receipt Date: 20190402
  Transmission Date: 20190711
  Serious: Yes (Other)
  Sender: FDA-Public Use
  Company Number: NO-PFIZER INC-2017513514

PATIENT
  Age: 22 Year
  Sex: Male

DRUGS (4)
  1. ORFIRIL [Suspect]
     Active Substance: VALPROATE SODIUM
     Indication: FOCAL DYSCOGNITIVE SEIZURES
     Dosage: UNK
     Dates: start: 1995, end: 200802
  2. ORFIRIL RETARD [Suspect]
     Active Substance: VALPROIC ACID
     Indication: FOCAL DYSCOGNITIVE SEIZURES
     Dosage: UNK
  3. ORFIRIL LONG [Suspect]
     Active Substance: VALPROIC ACID
     Indication: FOCAL DYSCOGNITIVE SEIZURES
     Dosage: UNK
     Dates: start: 20050216, end: 200712
  4. LYRICA [Suspect]
     Active Substance: PREGABALIN
     Indication: EPILEPSY
     Dosage: UNK
     Dates: start: 20050520, end: 20050920

REACTIONS (5)
  - Haemorrhoids [Unknown]
  - Constipation [Unknown]
  - Weight increased [Unknown]
  - Haemorrhoids thrombosed [Unknown]
  - Abnormal faeces [Unknown]

NARRATIVE: CASE EVENT DATE: 2005
